FAERS Safety Report 4087267 (Version 5)
Quarter: 2020Q3

REPORT INFORMATION
  Report Type: Report from Study
  Country: BE (occurrence: BE)
  Receive Date: 20040202
  Receipt Date: 20040811
  Transmission Date: 20201104
  Serious: Yes (Hospitalization)
  Sender: FDA-Public Use
  Company Number: BE-JNJFOC-20040104052

PATIENT
  Age: 68 Year
  Sex: Female

DRUGS (2)
  1. PLACEBO [Suspect]
     Active Substance: UNSPECIFIED INGREDIENT
     Route: 042
  2. PLACEBO [Suspect]
     Active Substance: UNSPECIFIED INGREDIENT
     Indication: PSORIASIS
     Route: 042

REACTIONS (5)
  - Psoriasis [None]
  - Condition aggravated [None]
  - Haematocrit decreased [None]
  - Drug ineffective [None]
  - Toxicity to various agents [None]

NARRATIVE: CASE EVENT DATE: 20030527
